FAERS Safety Report 20218370 (Version 1)
Quarter: 2021Q4

REPORT INFORMATION
  Report Type: Spontaneous
  Country: US (occurrence: US)
  Receive Date: 20211222
  Receipt Date: 20211222
  Transmission Date: 20220303
  Serious: No
  Sender: FDA-Public Use
  Company Number: US-BioHaven Pharmaceuticals-2021BHV000471

PATIENT
  Age: 57 Year
  Sex: Female
  Weight: 62.652 kg

DRUGS (4)
  1. NURTEC ODT [Suspect]
     Active Substance: RIMEGEPANT SULFATE
     Indication: Migraine
     Dosage: OVER A FOUR TO FIVE WEEK PERIOD, TOOK 5 DOSES
     Route: 048
     Dates: start: 20210311, end: 20210416
  2. NURTEC ODT [Suspect]
     Active Substance: RIMEGEPANT SULFATE
     Route: 065
  3. MODERNA COVID-19 VACCINE [Suspect]
     Active Substance: ELASOMERAN
     Indication: Immunisation
     Dosage: FIRST DOSE ON 08-APR-2021
     Route: 065
     Dates: start: 20210408, end: 20210408
  4. MODERNA COVID-19 VACCINE [Suspect]
     Active Substance: ELASOMERAN
     Dosage: SECOND DOSE ON 19-MAY-2021
     Route: 065
     Dates: start: 20210519, end: 20210519

REACTIONS (11)
  - Pain in extremity [Not Recovered/Not Resolved]
  - Neck pain [Not Recovered/Not Resolved]
  - Joint swelling [Not Recovered/Not Resolved]
  - Musculoskeletal stiffness [Not Recovered/Not Resolved]
  - Gait inability [Not Recovered/Not Resolved]
  - Dysstasia [Not Recovered/Not Resolved]
  - Arthralgia [Not Recovered/Not Resolved]
  - Arthritis [Unknown]
  - Pain [Unknown]
  - Gait disturbance [Unknown]
  - Hypersensitivity [Not Recovered/Not Resolved]

NARRATIVE: CASE EVENT DATE: 20210301
